FAERS Safety Report 11162317 (Version 1)
Quarter: 2015Q2

REPORT INFORMATION
  Report Type: Spontaneous
  Country: US (occurrence: None)
  Receive Date: 20150603
  Receipt Date: 20150603
  Transmission Date: 20150821
  Serious: Yes (Life-Threatening, Disabling)
  Sender: FDA-Public Use
  Company Number: None

PATIENT
  Age: 70 Year
  Sex: Female
  Weight: 88.45 kg

DRUGS (2)
  1. LUCENTIS [Suspect]
     Active Substance: RANIBIZUMAB
     Indication: AGE-RELATED MACULAR DEGENERATION
     Dates: start: 20150413
  2. VITAMIN D3 [Concomitant]
     Active Substance: CHOLECALCIFEROL

REACTIONS (40)
  - Weight increased [None]
  - Fatigue [None]
  - Low density lipoprotein increased [None]
  - Eye pain [None]
  - Disturbance in attention [None]
  - Balance disorder [None]
  - Arthralgia [None]
  - Executive dysfunction [None]
  - Urine flow decreased [None]
  - Muscle atrophy [None]
  - Toxicity to various agents [None]
  - Urine odour abnormal [None]
  - Eye inflammation [None]
  - Hypoaesthesia [None]
  - Dizziness [None]
  - Muscular weakness [None]
  - Myalgia [None]
  - Increased appetite [None]
  - Movement disorder [None]
  - Off label use [None]
  - Ocular hyperaemia [None]
  - Cough [None]
  - Memory impairment [None]
  - Tinnitus [None]
  - Liver disorder [None]
  - Intraocular pressure increased [None]
  - Skin disorder [None]
  - Pulmonary congestion [None]
  - Affective disorder [None]
  - Insomnia [None]
  - Gastrointestinal disorder [None]
  - Hypoacusis [None]
  - Angina pectoris [None]
  - Renal pain [None]
  - Liver function test abnormal [None]
  - Renal impairment [None]
  - Erythema [None]
  - Neurological symptom [None]
  - Gait disturbance [None]
  - Liver injury [None]

NARRATIVE: CASE EVENT DATE: 20150413
